FAERS Safety Report 8863232 (Version 1)
Quarter: 2012Q4

REPORT INFORMATION
  Report Type: Report from Study
  Country: US (occurrence: US)
  Receive Date: 20121025
  Receipt Date: 20121025
  Transmission Date: 20130627
  Serious: No
  Sender: FDA-Public Use
  Company Number: US-ABBOTT-11P-163-0868858-00

PATIENT
  Sex: Female
  Weight: 49.94 kg

DRUGS (3)
  1. LUPRON DEPOT 3.75 MG [Suspect]
     Indication: ENDOMETRIOSIS
     Dates: start: 201107
  2. DEPAKOTE [Concomitant]
     Indication: ANXIETY
     Dates: start: 20110704
  3. DEPAKOTE [Concomitant]
     Indication: DEPRESSION

REACTIONS (5)
  - Pain [Not Recovered/Not Resolved]
  - Vaginal haemorrhage [Recovered/Resolved]
  - Vaginal haemorrhage [Recovered/Resolved]
  - Abdominal distension [Recovered/Resolved]
  - Vaginal haemorrhage [Recovered/Resolved]
